FAERS Safety Report 14637584 (Version 1)
Quarter: 2018Q1

REPORT INFORMATION
  Report Type: Spontaneous
  Country: US (occurrence: US)
  Receive Date: 20180314
  Receipt Date: 20180314
  Transmission Date: 20180509
  Serious: No
  Sender: FDA-Public Use
  Company Number: US-TEVA-2018-US-860304

PATIENT
  Sex: Male

DRUGS (2)
  1. DOXEPIN MYLAN [Suspect]
     Active Substance: DOXEPIN
     Route: 065
     Dates: start: 2017, end: 201712
  2. LINEZOLID. [Suspect]
     Active Substance: LINEZOLID
     Route: 065

REACTIONS (7)
  - Pollakiuria [Unknown]
  - Headache [Unknown]
  - Scratch [Unknown]
  - Migraine [Not Recovered/Not Resolved]
  - Eye pain [Unknown]
  - Ear pain [Unknown]
  - Infection [Unknown]
